FAERS Safety Report 25556083 (Version 1)
Quarter: 2025Q3

REPORT INFORMATION
  Report Type: Spontaneous
  Country: US (occurrence: US)
  Receive Date: 20250715
  Receipt Date: 20250715
  Transmission Date: 20251021
  Serious: No
  Sender: NOVO NORDISK
  Company Number: US-NOVOPROD-1314790

PATIENT
  Sex: Female

DRUGS (1)
  1. OZEMPIC [Suspect]
     Active Substance: SEMAGLUTIDE
     Indication: Type 2 diabetes mellitus
     Dosage: 0.5 MG QW
     Route: 058
     Dates: start: 20240715

REACTIONS (5)
  - Adverse drug reaction [Unknown]
  - Dyspepsia [Recovered/Resolved]
  - Injection site indentation [Unknown]
  - Inappropriate schedule of product administration [Unknown]
  - Off label use [Unknown]
